FAERS Safety Report 16868710 (Version 2)
Quarter: 2019Q4

REPORT INFORMATION
  Report Type: Spontaneous
  Country: US (occurrence: US)
  Receive Date: 20190930
  Receipt Date: 20191018
  Transmission Date: 20200122
  Serious: Yes (Hospitalization, Other)
  Sender: FDA-Public Use
  Company Number: US-PFIZER INC-2019418853

PATIENT
  Age: 62 Year
  Sex: Female

DRUGS (2)
  1. XELJANZ XR [Suspect]
     Active Substance: TOFACITINIB CITRATE
     Indication: PSORIATIC ARTHROPATHY
  2. XELJANZ XR [Suspect]
     Active Substance: TOFACITINIB CITRATE
     Indication: RHEUMATOID ARTHRITIS
     Dosage: 11 MG, 1X/DAY
     Route: 048
     Dates: start: 201907, end: 20190922

REACTIONS (11)
  - Red blood cell count decreased [Unknown]
  - Lower respiratory tract infection [Unknown]
  - Inflammation [Unknown]
  - Osteoporosis [Unknown]
  - Pulmonary embolism [Unknown]
  - Drug ineffective [Unknown]
  - Sinusitis [Unknown]
  - Spinal fracture [Unknown]
  - Deep vein thrombosis [Unknown]
  - White blood cell count increased [Unknown]
  - Cushingoid [Unknown]
